FAERS Safety Report 9931187 (Version 3)
Quarter: 2015Q4

REPORT INFORMATION
  Report Type: Report from Study
  Country: US (occurrence: US)
  Receive Date: 20140228
  Receipt Date: 20151119
  Transmission Date: 20160305
  Serious: Yes (Other)
  Sender: FDA-Public Use
  Company Number: US-ROCHE-1336952

PATIENT
  Age: 54 Year
  Sex: Male

DRUGS (8)
  1. AVASTIN [Suspect]
     Active Substance: BEVACIZUMAB
     Indication: PRODUCT USED FOR UNKNOWN INDICATION
     Route: 065
  2. BETADINE [Concomitant]
     Active Substance: POVIDONE-IODINE
     Dosage: GTT LID SCRUB
     Route: 065
  3. LUCENTIS [Suspect]
     Active Substance: RANIBIZUMAB
     Indication: RETINAL VEIN OCCLUSION
     Dosage: OD
     Route: 050
     Dates: start: 20110114
  4. LIDOCAINE HYDROCHLORIDE. [Concomitant]
     Active Substance: LIDOCAINE HYDROCHLORIDE
     Route: 047
  5. LUCENTIS [Suspect]
     Active Substance: RANIBIZUMAB
     Indication: RETINAL OEDEMA
  6. VIGAMOX [Concomitant]
     Active Substance: MOXIFLOXACIN HYDROCHLORIDE
     Dosage: X 3 DAYS
     Route: 065
  7. ALPHAGAN P [Concomitant]
     Active Substance: BRIMONIDINE TARTRATE
  8. PROPARACAINE [Concomitant]
     Active Substance: PROPARACAINE
     Route: 065

REACTIONS (8)
  - Visual impairment [Unknown]
  - Back pain [Unknown]
  - Arthralgia [Unknown]
  - Retinal haemorrhage [Unknown]
  - Off label use [Unknown]
  - Visual acuity reduced [Unknown]
  - Macular oedema [Unknown]
  - Retinal vein occlusion [Unknown]

NARRATIVE: CASE EVENT DATE: 201108
